FAERS Safety Report 6802291-6 (Version None)
Quarter: 2010Q2

REPORT INFORMATION
  Report Type: 
  Country: None (occurrence: None)
  Receive Date: 20100628
  Receipt Date: 20100617
  Transmission Date: 20101027
  Serious: Yes (Hospitalization, Other)
  Sender: FDA-Public Use
  Company Number: 2005BI015931

PATIENT
  Age: 49 Year
  Sex: Female

DRUGS (1)
  1. AVONEX [Suspect]
     Indication: MULTIPLE SCLEROSIS
     Route: 030
     Dates: start: 20020623, end: 20091017

REACTIONS (7)
  - COUGH [None]
  - CYSTOPEXY [None]
  - EXOSTOSIS [None]
  - NERVE COMPRESSION [None]
  - SUTURE RELATED COMPLICATION [None]
  - THYROID CANCER [None]
  - URETHRAL DISORDER [None]
